FAERS Safety Report 18386838 (Version 1)
Quarter: 2020Q4

REPORT INFORMATION
  Report Type: Spontaneous
  Country: US (occurrence: US)
  Receive Date: 20201015
  Receipt Date: 20201015
  Transmission Date: 20210114
  Serious: Yes (Disabling)
  Sender: FDA-Public Use
  Company Number: None

PATIENT
  Age: 78 Year
  Sex: Female
  Weight: 51.75 kg

DRUGS (3)
  1. ATORVASTATEN [Concomitant]
  2. KEYTRUDA [Suspect]
     Active Substance: PEMBROLIZUMAB
     Indication: LUNG NEOPLASM MALIGNANT
     Dates: start: 20200424, end: 20200828
  3. PILOCARPINE. [Concomitant]
     Active Substance: PILOCARPINE

REACTIONS (6)
  - Ageusia [None]
  - Salivary gland disorder [None]
  - Aptyalism [None]
  - Depression [None]
  - Cardiac disorder [None]
  - Stress [None]

NARRATIVE: CASE EVENT DATE: 20200901
